FAERS Safety Report 4920171-8 (Version None)
Quarter: 2006Q1

REPORT INFORMATION
  Report Type: 
  Country: None (occurrence: None)
  Receive Date: 20060223
  Receipt Date: 20060215
  Transmission Date: 20060701
  Serious: Yes (Death, Other)
  Sender: FDA-Public Use
  Company Number: PHBS2006JP02450

PATIENT
  Age: 71 Year
  Sex: Female

DRUGS (1)
  1. GLEEVEC [Suspect]
     Indication: CHRONIC MYELOID LEUKAEMIA
     Route: 065
     Dates: end: 20051001

REACTIONS (3)
  - BONE MARROW FAILURE [None]
  - DEATH [None]
  - HYPOGLYCAEMIA [None]
